FAERS Safety Report 21274268 (Version 1)
Quarter: 2022Q3

REPORT INFORMATION
  Report Type: Spontaneous
  Country: US (occurrence: None)
  Receive Date: 20220830
  Receipt Date: 20220830
  Transmission Date: 20221027
  Serious: Yes (Disabling)
  Sender: FDA-Public Use
  Company Number: None

PATIENT
  Age: 46 Year
  Sex: Female
  Weight: 68.4 kg

DRUGS (3)
  1. ATORVASTATIN [Suspect]
     Active Substance: ATORVASTATIN
     Indication: Blood cholesterol increased
     Dosage: OTHER QUANTITY : 1 TABLET(S);?FREQUENCY : DAILY;?
     Route: 048
     Dates: start: 20220801, end: 20220828
  2. Ziac 2.5mg/6.25mg QD [Concomitant]
  3. Vitafusion gummy vitamins [Concomitant]

REACTIONS (3)
  - Headache [None]
  - Middle insomnia [None]
  - Intentional dose omission [None]

NARRATIVE: CASE EVENT DATE: 20220829
